FAERS Safety Report 6554441-7 (Version None)
Quarter: 2010Q1

REPORT INFORMATION
  Report Type: 
  Country: None (occurrence: None)
  Receive Date: 20100125
  Receipt Date: 20100125
  Transmission Date: 20100710
  Serious: Yes (Hospitalization)
  Sender: FDA-Public Use
  Company Number: None

PATIENT
  Age: 31 Year
  Sex: Female

DRUGS (1)
  1. TIGECYCLINE [Suspect]
     Indication: INFECTION
     Dosage: 50MG BID IV
     Route: 042

REACTIONS (2)
  - DIARRHOEA [None]
  - PANCREATITIS [None]
